FAERS Safety Report 19944752 (Version 2)
Quarter: 2021Q4

REPORT INFORMATION
  Report Type: Report from Study
  Country: US (occurrence: US)
  Receive Date: 20211012
  Receipt Date: 20211110
  Transmission Date: 20220303
  Serious: Yes (Hospitalization, Other)
  Sender: FDA-Public Use
  Company Number: US-BOEHRINGERINGELHEIM-2020-BI-046463

PATIENT
  Age: 70 Year
  Sex: Female

DRUGS (2)
  1. OFEV [Suspect]
     Active Substance: NINTEDANIB
     Indication: Idiopathic pulmonary fibrosis
     Dosage: OFEV 100MG ORALLY ONCE DAILY
     Route: 048
     Dates: start: 20210916
  2. OFEV [Suspect]
     Active Substance: NINTEDANIB
     Dosage: 150 MG BID;?OFEV DOSE 300MG DAILY
     Route: 048
     Dates: start: 20200601

REACTIONS (21)
  - Pneumonia [Unknown]
  - Myocardial injury [Unknown]
  - Product dose omission issue [Unknown]
  - Dyspnoea [Unknown]
  - Fluid retention [Unknown]
  - Blood potassium decreased [Unknown]
  - Hyperthyroidism [Unknown]
  - Headache [Unknown]
  - Vomiting [Not Recovered/Not Resolved]
  - Decreased appetite [Not Recovered/Not Resolved]
  - Abdominal discomfort [Not Recovered/Not Resolved]
  - Fatigue [Unknown]
  - Dehydration [Unknown]
  - Abdominal pain upper [Unknown]
  - Abdominal pain upper [Unknown]
  - Swelling [Unknown]
  - Nausea [Not Recovered/Not Resolved]
  - Gastrointestinal disorder [Not Recovered/Not Resolved]
  - Gastrointestinal pain [Not Recovered/Not Resolved]
  - Cough [Unknown]
  - Diarrhoea [Recovering/Resolving]

NARRATIVE: CASE EVENT DATE: 20200801
